FAERS Safety Report 7652922-6 (Version None)
Quarter: 2011Q3

REPORT INFORMATION
  Report Type: 
  Country: None (occurrence: None)
  Receive Date: 20110803
  Receipt Date: 20110722
  Transmission Date: 20111222
  Serious: Yes (Death, Hospitalization)
  Sender: FDA-Public Use
  Company Number: US-JNJFOC-20110710057

PATIENT
  Sex: Female

DRUGS (1)
  1. REMICADE [Suspect]
     Indication: RHEUMATOID ARTHRITIS
     Dosage: PATIENT RECEIVED A TOTAL OF 2 INFLIXIMAB INFUSIONS.
     Route: 042
     Dates: start: 20110101, end: 20110701

REACTIONS (4)
  - INFUSION RELATED REACTION [None]
  - CARDIAC FAILURE [None]
  - DYSPNOEA [None]
  - MYOCARDIAL INFARCTION [None]
